FAERS Safety Report 9196972 (Version 1)
Quarter: 2013Q1

REPORT INFORMATION
  Report Type: Spontaneous
  Country: US (occurrence: US)
  Receive Date: 20130328
  Receipt Date: 20130328
  Transmission Date: 20140127
  Serious: Yes (Hospitalization, Other)
  Sender: FDA-Public Use
  Company Number: US-UCBSA-081569

PATIENT
  Sex: Female

DRUGS (5)
  1. KEPPRA [Suspect]
  2. KEPPRA [Suspect]
     Dosage: TITRATED DOWN
  3. POTIGA [Suspect]
     Indication: EPILEPSY
     Route: 048
  4. POTIGA [Suspect]
     Indication: EPILEPSY
     Dosage: TITRATED UP
     Route: 048
  5. LYRICA [Concomitant]

REACTIONS (3)
  - Hypotension [Unknown]
  - Syncope [Unknown]
  - Depression [Unknown]
